FAERS Safety Report 8582854-0 (Version None)
Quarter: 2012Q3

REPORT INFORMATION
  Report Type: 
  Country: None (occurrence: None)
  Receive Date: 20120809
  Receipt Date: 20120731
  Transmission Date: 20120928
  Serious: Yes (Other)
  Sender: FDA-Public Use
  Company Number: US-ABBOTT-12P-163-0962952-00

PATIENT
  Sex: Female
  Weight: 105.33 kg

DRUGS (5)
  1. ZIAC [Concomitant]
     Indication: PRODUCT USED FOR UNKNOWN INDICATION
  2. SIMCOR [Suspect]
     Dosage: 750/20MG AT BEDTIME
     Dates: start: 20120729
  3. HYDROCODONE BITARTRATE [Concomitant]
     Indication: PRODUCT USED FOR UNKNOWN INDICATION
  4. ASPIRIN [Concomitant]
     Indication: PRODUCT USED FOR UNKNOWN INDICATION
  5. SIMCOR [Suspect]
     Indication: HIGH DENSITY LIPOPROTEIN DECREASED
     Dosage: 750/20MG AT BEDTIME
     Dates: start: 20110701, end: 20120606

REACTIONS (3)
  - FLUSHING [None]
  - KNEE OPERATION [None]
  - SKIN BURNING SENSATION [None]
